FAERS Safety Report 6781486-4 (Version None)
Quarter: 2010Q2

REPORT INFORMATION
  Report Type: 
  Country: None (occurrence: None)
  Receive Date: 20100621
  Receipt Date: 20100611
  Transmission Date: 20101027
  Serious: Yes (Other)
  Sender: FDA-Public Use
  Company Number: BE-ROCHE-709151

PATIENT
  Age: 90 Year
  Sex: Female

DRUGS (1)
  1. BONIVA [Suspect]
     Indication: OSTEOPOROSIS
     Route: 042
     Dates: start: 20090601

REACTIONS (1)
  - OSTEITIS [None]
